FAERS Safety Report 4394862-4 (Version None)
Quarter: 2004Q3

REPORT INFORMATION
  Report Type: 
  Country: None (occurrence: None)
  Receive Date: 20040706
  Receipt Date: 20040621
  Transmission Date: 20050211
  Serious: Yes (Hospitalization)
  Sender: FDA-Public Use
  Company Number: 237767

PATIENT
  Age: 67 Year
  Sex: Female

DRUGS (5)
  1. INSULATARD (INSULIN HUMAN) SUSPENSION FOR INJECTION [Suspect]
     Indication: INSULIN-REQUIRING TYPE II DIABETES MELLITUS
     Dosage: SUBCUTANEOUS
     Route: 058
     Dates: start: 20040503
  2. AMAREL [Concomitant]
  3. TRANXENE [Concomitant]
  4. SEROPRAM (CITALOPRAM HYDROBROMIDE) [Concomitant]
  5. GLUCOPHAG [Concomitant]

REACTIONS (1)
  - LEUKOCYTOCLASTIC VASCULITIS [None]
